FAERS Safety Report 8854997 (Version 1)
Quarter: 2012Q4

REPORT INFORMATION
  Report Type: 
  Country: US (occurrence: US)
  Receive Date: 20121023
  Receipt Date: 20121023
  Transmission Date: 20130627
  Serious: No
  Sender: FDA-Public Use
  Company Number: US-TEVA-365312USA

PATIENT
  Sex: Female
  Weight: 87.17 kg

DRUGS (6)
  1. NUVIGIL [Suspect]
     Indication: SLEEP APNOEA SYNDROME
     Dosage: 150 Milligram Daily; 1/2 or 1 tab QD
     Route: 048
     Dates: start: 201110
  2. GLIMEPIRIDE [Concomitant]
     Indication: DIABETES MELLITUS
     Dosage: 3 Milligram Daily;
     Route: 048
  3. HCTZ [Concomitant]
     Dosage: 25 Milligram Daily;
     Route: 048
  4. VITAMIN D [Concomitant]
     Route: 048
  5. PANTOPRAZOLE [Concomitant]
     Indication: GASTROOESOPHAGEAL REFLUX DISEASE
     Route: 048
  6. FISH OIL [Concomitant]

REACTIONS (1)
  - Weight increased [Not Recovered/Not Resolved]
